FAERS Safety Report 10073862 (Version 2)
Quarter: 2014Q2

REPORT INFORMATION
  Report Type: Report from Study
  Country: US (occurrence: US)
  Receive Date: 20140411
  Receipt Date: 20140424
  Transmission Date: 20141212
  Serious: Yes (Hospitalization, Other)
  Sender: FDA-Public Use
  Company Number: US-ABBVIE-14P-163-1221970-00

PATIENT
  Sex: Male

DRUGS (2)
  1. ANDROGEL [Suspect]
     Indication: BLOOD TESTOSTERONE DECREASED
     Dosage: 6-7 PUMPS DAILY
     Route: 061
  2. ANDROGEL [Suspect]
     Dosage: 8 PUMPS PER DAY

REACTIONS (6)
  - Cardiac operation [Recovered/Resolved]
  - Blood pressure increased [Recovering/Resolving]
  - Incorrect dose administered [Not Recovered/Not Resolved]
  - Therapeutic response changed [Not Recovered/Not Resolved]
  - Promotion of wound healing [Not Recovered/Not Resolved]
  - Prescribed overdose [Unknown]
